FAERS Safety Report 17837596 (Version 2)
Quarter: 2020Q2

REPORT INFORMATION
  Report Type: Other
  Country: None (occurrence: US)
  Receive Date: 20200528
  Receipt Date: 20200602
  Transmission Date: 20200714
  Serious: Yes (Hospitalization)
  Sender: FDA-Public Use
  Company Number: US-BAUSCH-BL-2020-015522

PATIENT

DRUGS (1)
  1. BUPROPION. [Suspect]
     Active Substance: BUPROPION
     Indication: PRODUCT USED FOR UNKNOWN INDICATION
     Dosage: THE AVERAGE DOSE INGESTED WAS 2400 MG.
     Route: 048

REACTIONS (6)
  - Overdose [Unknown]
  - Substance use [Unknown]
  - Suicide attempt [Unknown]
  - Accidental overdose [Unknown]
  - Toxicity to various agents [Unknown]
  - Serotonin syndrome [Unknown]
